FAERS Safety Report 5503203-8 (Version None)
Quarter: 2007Q4

REPORT INFORMATION
  Report Type: 
  Country: None (occurrence: None)
  Receive Date: 20071031
  Receipt Date: 20070919
  Transmission Date: 20080405
  Serious: Yes (Hospitalization)
  Sender: FDA-Public Use
  Company Number: FI-ASTRAZENECA-2007SE04188

PATIENT
  Age: 53 Year
  Sex: Male

DRUGS (5)
  1. SEROQUEL [Suspect]
     Indication: DEPRESSION
     Route: 048
     Dates: start: 20031101
  2. SEROQUEL [Suspect]
     Route: 048
     Dates: end: 20070101
  3. REMERON [Concomitant]
     Indication: DEPRESSION
  4. TENOX [Concomitant]
  5. DIAPAM [Concomitant]
     Dosage: 10-15 MG

REACTIONS (3)
  - BENIGN PROSTATIC HYPERPLASIA [None]
  - DYSURIA [None]
  - URINARY RETENTION [None]
